FAERS Safety Report 11112099 (Version 1)
Quarter: 2015Q2

REPORT INFORMATION
  Report Type: Spontaneous
  Country: FR (occurrence: FR)
  Receive Date: 20150514
  Receipt Date: 20150514
  Transmission Date: 20150821
  Serious: Yes (Hospitalization)
  Sender: FDA-Public Use
  Company Number: FR-JNJFOC-20150502692

PATIENT
  Age: 62 Year
  Sex: Male

DRUGS (6)
  1. ACTIFED [Suspect]
     Active Substance: PSEUDOEPHEDRINE HYDROCHLORIDE\TRIPROLIDINE HYDROCHLORIDE
     Indication: PRODUCT USED FOR UNKNOWN INDICATION
     Dosage: DAY TABLET
     Route: 065
     Dates: start: 20141104, end: 20141110
  2. PENTASA [Concomitant]
     Active Substance: MESALAMINE
     Route: 065
     Dates: start: 2006
  3. ACTIFED [Suspect]
     Active Substance: PSEUDOEPHEDRINE HYDROCHLORIDE\TRIPROLIDINE HYDROCHLORIDE
     Indication: PRODUCT USED FOR UNKNOWN INDICATION
     Dosage: NIGHT TABLET
     Route: 065
     Dates: start: 20141104, end: 20141110
  4. PYGEUM [Concomitant]
     Active Substance: PYGEUM
     Dosage: TADENAN 50
     Route: 065
     Dates: start: 20080101
  5. OMEPRAZOLE. [Concomitant]
     Active Substance: OMEPRAZOLE
     Dosage: OMEPRAZOLE 20
     Route: 065
     Dates: start: 20070101
  6. NASODREN [Concomitant]
     Route: 065

REACTIONS (2)
  - Palpitations [Recovered/Resolved]
  - Electrocardiogram repolarisation abnormality [Recovered/Resolved]

NARRATIVE: CASE EVENT DATE: 20141110
